FAERS Safety Report 6296785-2 (Version None)
Quarter: 2009Q3

REPORT INFORMATION
  Report Type: 
  Country: None (occurrence: None)
  Receive Date: 20090804
  Receipt Date: 20090721
  Transmission Date: 20100115
  Serious: Yes (Other)
  Sender: FDA-Public Use
  Company Number: FR-GENENTECH-286507

PATIENT
  Sex: Female

DRUGS (2)
  1. BEVACIZUMAB [Suspect]
     Indication: BREAST CANCER METASTATIC
     Dosage: 800 MG, Q21D
     Route: 042
     Dates: start: 20071023, end: 20090623
  2. ZOLEDRONIC ACID [Concomitant]
     Indication: DRUG USE FOR UNKNOWN INDICATION
     Dosage: UNK
     Dates: start: 20080423

REACTIONS (2)
  - CARDIOTOXICITY [None]
  - PULMONARY HYPERTENSION [None]
